FAERS Safety Report 5173736-5 (Version None)
Quarter: 2006Q4

REPORT INFORMATION
  Report Type: 
  Country: None (occurrence: None)
  Receive Date: 20061214
  Receipt Date: 20061206
  Transmission Date: 20070319
  Serious: Yes (Other)
  Sender: FDA-Public Use
  Company Number: 2006AP05837

PATIENT
  Age: 75 Year
  Weight: 50 kg

DRUGS (1)
  1. MEROPENEM [Suspect]

REACTIONS (1)
  - HEPATITIS [None]
